FAERS Safety Report 5327553-3 (Version None)
Quarter: 2007Q2

REPORT INFORMATION
  Report Type: 
  Country: None (occurrence: None)
  Receive Date: 20070517
  Receipt Date: 20070131
  Transmission Date: 20071010
  Serious: Yes (Hospitalization)
  Sender: FDA-Public Use
  Company Number: US-JNJFOC-20070104421

PATIENT
  Age: 36 Year
  Sex: Male

DRUGS (4)
  1. TRAMADOL HCL [Suspect]
     Indication: INTENTIONAL DRUG MISUSE
     Route: 065
  2. UNKNOWN MEDICATION [Suspect]
     Indication: INTENTIONAL DRUG MISUSE
     Route: 065
  3. BENZODIAZEPINE [Concomitant]
     Route: 065
  4. ETHANOL [Concomitant]
     Route: 048

REACTIONS (3)
  - AGGRESSION [None]
  - AGITATION [None]
  - SUBSTANCE ABUSE [None]
